FAERS Safety Report 7626895-6 (Version None)
Quarter: 2011Q3

REPORT INFORMATION
  Report Type: 
  Country: None (occurrence: None)
  Receive Date: 20110721
  Receipt Date: 20110713
  Transmission Date: 20111222
  Serious: Yes (Hospitalization, Other)
  Sender: FDA-Public Use
  Company Number: US-BAYER-US-2007-002477

PATIENT
  Age: 59 Year
  Sex: Female

DRUGS (8)
  1. BETASERON [Suspect]
     Dosage: 8 MIU, QOD
     Route: 058
     Dates: start: 20090828
  2. SYNTHROID [Concomitant]
  3. ARICEPT [Concomitant]
  4. BETASERON [Suspect]
     Route: 058
     Dates: end: 20090728
  5. DIURETICS [Concomitant]
     Dosage: WATER PILL - AS USED DOSE: UNK
  6. BETASERON [Suspect]
     Indication: RELAPSING-REMITTING MULTIPLE SCLEROSIS
     Dosage: BETAJECT
     Route: 058
     Dates: start: 20090828
  7. BETASERON [Suspect]
     Dosage: 8 MIU, QOD
     Route: 058
     Dates: start: 19941019, end: 20090728
  8. DURAGESIC-100 [Concomitant]

REACTIONS (20)
  - BACK INJURY [None]
  - OEDEMA PERIPHERAL [None]
  - THYROID NEOPLASM [None]
  - PNEUMONIA [None]
  - WEIGHT DECREASED [None]
  - DEVICE RELATED SEPSIS [None]
  - SWELLING FACE [None]
  - ANKLE FRACTURE [None]
  - FEMUR FRACTURE [None]
  - WEIGHT INCREASED [None]
  - DERAILMENT [None]
  - LOWER LIMB FRACTURE [None]
  - TRANSIENT ISCHAEMIC ATTACK [None]
  - CONFUSIONAL STATE [None]
  - THYROID FUNCTION TEST ABNORMAL [None]
  - OSTEOPOROSIS [None]
  - PELVIC FRACTURE [None]
  - FALL [None]
  - LYMPHADENOPATHY [None]
  - SLEEP APNOEA SYNDROME [None]
